FAERS Safety Report 21492592 (Version 1)
Quarter: 2022Q4

REPORT INFORMATION
  Report Type: Spontaneous
  Country: US (occurrence: US)
  Receive Date: 20221021
  Receipt Date: 20221021
  Transmission Date: 20230113
  Serious: No
  Sender: FDA-Public Use
  Company Number: US-HORIZON THERAPEUTICS-HZN-2022-006151

PATIENT

DRUGS (2)
  1. KRYSTEXXA [Suspect]
     Active Substance: PEGLOTICASE
     Indication: Product used for unknown indication
     Dosage: FIRST INFUSION
     Route: 042
  2. KRYSTEXXA [Suspect]
     Active Substance: PEGLOTICASE
     Dosage: UNK(INFUSION)
     Route: 042
     Dates: start: 20220810

REACTIONS (1)
  - Flushing [Unknown]

NARRATIVE: CASE EVENT DATE: 20220810
